FAERS Safety Report 17016497 (Version 4)
Quarter: 2020Q1

REPORT INFORMATION
  Report Type: Spontaneous
  Country: US (occurrence: US)
  Receive Date: 20191111
  Receipt Date: 20200327
  Transmission Date: 20200409
  Serious: No
  Sender: FDA-Public Use
  Company Number: US-PFIZER INC-2019485766

PATIENT
  Age: 70 Year
  Sex: Female
  Weight: 48.73 kg

DRUGS (3)
  1. COMPAZINE [PROCHLORPERAZINE EDISYLATE] [Concomitant]
     Active Substance: PROCHLORPERAZINE EDISYLATE
     Dosage: 10 MG, UNK
  2. IBRANCE [Suspect]
     Active Substance: PALBOCICLIB
     Dosage: 100 MG, CYCLIC(DAILY FOR 21 DAYS ON, 7 OFF)
     Route: 048
  3. IBRANCE [Suspect]
     Active Substance: PALBOCICLIB
     Indication: BREAST CANCER
     Dosage: 125 MG, CYCLIC(DAILY FOR 21 DAYS ON, 7 OFF)
     Route: 048
     Dates: start: 201910

REACTIONS (5)
  - Blood count abnormal [Unknown]
  - Eating disorder [Unknown]
  - Feeling abnormal [Unknown]
  - Decreased appetite [Unknown]
  - White blood cell count decreased [Unknown]
